FAERS Safety Report 19059657 (Version 1)
Quarter: 2021Q1

REPORT INFORMATION
  Report Type: Spontaneous
  Country: BR (occurrence: BR)
  Receive Date: 20210326
  Receipt Date: 20210326
  Transmission Date: 20210420
  Serious: Yes (Death, Hospitalization)
  Sender: FDA-Public Use
  Company Number: BR-JNJFOC-20210346400

PATIENT
  Age: 68 Year

DRUGS (1)
  1. DALINVI [Suspect]
     Active Substance: DARATUMUMAB
     Indication: PLASMA CELL MYELOMA
     Route: 065
     Dates: start: 202102

REACTIONS (1)
  - Febrile neutropenia [Fatal]
